FAERS Safety Report 5239616-1 (Version None)
Quarter: 2007Q1

REPORT INFORMATION
  Report Type: 
  Country: None (occurrence: None)
  Receive Date: 20070216
  Receipt Date: 20070213
  Transmission Date: 20070707
  Serious: Yes (Other)
  Sender: FDA-Public Use
  Company Number: JP-JPN-A200604958

PATIENT
  Age: 37 Year
  Sex: Female

DRUGS (13)
  1. FLUTICASONE PROPIONATE [Suspect]
     Indication: DRUG USE FOR UNKNOWN INDICATION
     Dosage: 100MCG TWICE PER DAY
     Route: 055
  2. RITONAVIR [Suspect]
     Route: 065
  3. THEO-DUR [Concomitant]
     Route: 048
  4. MEPTIN AIR [Concomitant]
     Route: 055
  5. HOKUNALIN [Concomitant]
     Route: 062
  6. SEREVENT [Concomitant]
     Route: 055
  7. LOXONIN [Concomitant]
     Route: 065
  8. NORVIR [Concomitant]
     Route: 048
  9. TRUVADA [Concomitant]
     Route: 048
  10. REYATAZ [Concomitant]
     Route: 048
  11. ATAZANAVIR [Concomitant]
     Route: 065
  12. EMTRICITABINE [Concomitant]
     Route: 065
     Dates: start: 20060701
  13. TENOFOVIR DISOPROXIL FUMARATE [Concomitant]
     Route: 065
     Dates: start: 20060701

REACTIONS (7)
  - ACTH STIMULATION TEST ABNORMAL [None]
  - ADRENAL CORTICAL INSUFFICIENCY [None]
  - BLOOD CORTISOL DECREASED [None]
  - DRUG INTERACTION [None]
  - DRUG LEVEL INCREASED [None]
  - SKIN STRIAE [None]
  - WEIGHT INCREASED [None]
